FAERS Safety Report 8202705-3 (Version None)
Quarter: 2012Q1

REPORT INFORMATION
  Report Type: 
  Country: None (occurrence: None)
  Receive Date: 20120312
  Receipt Date: 20120302
  Transmission Date: 20120608
  Serious: Yes (Other)
  Sender: FDA-Public Use
  Company Number: US-ASTRAZENECA-2012SE14825

PATIENT
  Age: 76 Year
  Sex: Female
  Weight: 59 kg

DRUGS (5)
  1. LOTREL [Concomitant]
  2. ARIMIDEX [Suspect]
     Indication: BREAST CANCER
     Route: 048
     Dates: start: 20100101
  3. CLONIDINE [Concomitant]
  4. LABETALOL HCL [Concomitant]
  5. LIPITOR [Concomitant]

REACTIONS (4)
  - MUSCLE DISORDER [None]
  - RENAL FAILURE [None]
  - ARTERIOSCLEROSIS CORONARY ARTERY [None]
  - MUSCLE SPASMS [None]
